FAERS Safety Report 25350340 (Version 4)
Quarter: 2025Q3

REPORT INFORMATION
  Report Type: Report from Study
  Country: US (occurrence: US)
  Receive Date: 20250523
  Receipt Date: 20250702
  Transmission Date: 20251021
  Serious: Yes (Death, Hospitalization, Other)
  Sender: INSMED
  Company Number: US-INSMED, INC.-2025-01591-US

PATIENT
  Age: 68 Year
  Sex: Male

DRUGS (1)
  1. ARIKAYCE [Suspect]
     Active Substance: AMIKACIN
     Indication: Mycobacterium avium complex infection
     Dosage: 590 MILLIGRAM, QD
     Route: 055
     Dates: end: 202506

REACTIONS (13)
  - Death [Fatal]
  - Implantable cardiac monitor insertion [Unknown]
  - Vena cava injury [Unknown]
  - Lung operation [Unknown]
  - Pulmonary haemorrhage [Unknown]
  - Cardiac disorder [Unknown]
  - Lung disorder [Unknown]
  - Hospitalisation [Unknown]
  - Fungal infection [Unknown]
  - Pain [Unknown]
  - Malaise [Unknown]
  - Haemoptysis [Unknown]
  - Therapy interrupted [Unknown]

NARRATIVE: CASE EVENT DATE: 20250501
